FAERS Safety Report 15317929 (Version 1)
Quarter: 2018Q3

REPORT INFORMATION
  Report Type: Spontaneous
  Country: US (occurrence: US)
  Receive Date: 20180816
  Receipt Date: 20180816
  Transmission Date: 20181010
  Serious: Yes (Death)
  Sender: FDA-Public Use
  Company Number: None

PATIENT
  Age: 35 Year
  Sex: Male
  Weight: 109.32 kg

DRUGS (2)
  1. FERUMOXYTOL [Suspect]
     Active Substance: FERUMOXYTOL NON-STOICHIOMETRIC MAGNETITE
     Route: 042
     Dates: start: 20180807
  2. PROHANCE [Suspect]
     Active Substance: GADOTERIDOL
     Indication: GLIOBLASTOMA
     Route: 042
     Dates: start: 20180806

REACTIONS (9)
  - Seizure [None]
  - Cerebral infarction [None]
  - Pupil fixed [None]
  - Procedural complication [None]
  - Brain oedema [None]
  - Areflexia [None]
  - Post procedural complication [None]
  - Intracranial pressure increased [None]
  - Brain herniation [None]

NARRATIVE: CASE EVENT DATE: 20180809
